FAERS Safety Report 6859459-2 (Version None)
Quarter: 2010Q3

REPORT INFORMATION
  Report Type: 
  Country: None (occurrence: None)
  Receive Date: 20100719
  Receipt Date: 20080225
  Transmission Date: 20110219
  Serious: No
  Sender: FDA-Public Use
  Company Number: US-PFIZER INC-2008019908

PATIENT
  Sex: Female
  Weight: 53.2 kg

DRUGS (1)
  1. CHANTIX [Suspect]
     Indication: SMOKING CESSATION THERAPY
     Dates: start: 20080204, end: 20080218

REACTIONS (3)
  - EMOTIONAL DISORDER [None]
  - MOOD ALTERED [None]
  - TEARFULNESS [None]
